FAERS Safety Report 5656791-5 (Version None)
Quarter: 2008Q1

REPORT INFORMATION
  Report Type: 
  Country: None (occurrence: None)
  Receive Date: 20080306
  Receipt Date: 20080306
  Transmission Date: 20080703
  Serious: Yes (Other)
  Sender: FDA-Public Use
  Company Number: None

PATIENT
  Age: 56 Year
  Sex: Female
  Weight: 59.4212 kg

DRUGS (4)
  1. PRAVASTATIN SODIUM [Suspect]
     Indication: BLOOD CHOLESTEROL INCREASED
     Dosage: 1 TABLET AT BEDTIME 1QD PO
     Route: 048
     Dates: start: 20080123, end: 20080305
  2. PRAVASTATIN SODIUM [Suspect]
     Indication: BLOOD TRIGLYCERIDES
     Dosage: 1 TABLET AT BEDTIME 1QD PO
     Route: 048
     Dates: start: 20080123, end: 20080305
  3. PRAVASTATIN SODIUM [Suspect]
     Indication: HIGH DENSITY LIPOPROTEIN DECREASED
     Dosage: 1 TABLET AT BEDTIME 1QD PO
     Route: 048
     Dates: start: 20080123, end: 20080305
  4. PRAVASTATIN SODIUM [Suspect]
     Indication: LOW DENSITY LIPOPROTEIN
     Dosage: 1 TABLET AT BEDTIME 1QD PO
     Route: 048
     Dates: start: 20080123, end: 20080305

REACTIONS (5)
  - GASTROINTESTINAL DISORDER [None]
  - HEADACHE [None]
  - MEMORY IMPAIRMENT [None]
  - MYALGIA [None]
  - NECK PAIN [None]
